FAERS Safety Report 4847375-7 (Version None)
Quarter: 2005Q4

REPORT INFORMATION
  Report Type: 
  Country: None (occurrence: None)
  Receive Date: 20051205
  Receipt Date: 20051122
  Transmission Date: 20060501
  Serious: Yes (Hospitalization, Other)
  Sender: FDA-Public Use
  Company Number: 2005160464

PATIENT
  Sex: Male
  Weight: 95.2554 kg

DRUGS (6)
  1. VIAGRA [Suspect]
     Indication: ERECTILE DYSFUNCTION
     Dosage: 25 MG (25 MG, 1 AS NECESSARY) ORAL
     Route: 048
     Dates: start: 20010101
  2. AVANDIA [Concomitant]
  3. GLYBURIDE [Concomitant]
  4. ANTIHYPERTENSIVES [Concomitant]
  5. LASIX [Concomitant]
  6. ACETAMINOPHEN [Concomitant]

REACTIONS (7)
  - CEREBROVASCULAR ACCIDENT [None]
  - CONFUSIONAL STATE [None]
  - FALL [None]
  - LIVER DISORDER [None]
  - NEUROTOXICITY [None]
  - PARAESTHESIA [None]
  - THERAPY NON-RESPONDER [None]
